FAERS Safety Report 4597584-X (Version None)
Quarter: 2005Q1

REPORT INFORMATION
  Report Type: 
  Country: None (occurrence: None)
  Receive Date: 20050228
  Receipt Date: 20050228
  Transmission Date: 20050727
  Serious: Yes (Life-Threatening)
  Sender: FDA-Public Use
  Company Number: None

PATIENT
  Age: 61 Year
  Sex: Male
  Weight: 72.5755 kg

DRUGS (1)
  1. CYMBALTA [Suspect]
     Dosage: 30 MG PO ORAL
     Route: 048

REACTIONS (2)
  - DEHYDRATION [None]
  - ORTHOSTATIC HYPOTENSION [None]
